FAERS Safety Report 7392211-0 (Version None)
Quarter: 2011Q2

REPORT INFORMATION
  Report Type: 
  Country: None (occurrence: None)
  Receive Date: 20110404
  Receipt Date: 20110328
  Transmission Date: 20111010
  Serious: Yes (Other)
  Sender: FDA-Public Use
  Company Number: B0710525A

PATIENT
  Age: 49 Year
  Sex: Female
  Weight: 70 kg

DRUGS (1)
  1. AVAMYS [Suspect]
     Dosage: 110MCG PER DAY
     Route: 045
     Dates: start: 20110201, end: 20110301

REACTIONS (3)
  - HEADACHE [None]
  - BLOOD PRESSURE INCREASED [None]
  - TINNITUS [None]
